FAERS Safety Report 8446065 (Version 3)
Quarter: 2013Q1

REPORT INFORMATION
  Report Type: Spontaneous
  Country: US (occurrence: US)
  Receive Date: 20120307
  Receipt Date: 20130222
  Transmission Date: 20140127
  Serious: No
  Sender: FDA-Public Use
  Company Number: US-ASTRAZENECA-2011SE54520

PATIENT
  Age: 45 Year
  Sex: Female

DRUGS (4)
  1. ZOMIG [Suspect]
     Indication: HEADACHE
     Route: 048
  2. ZOMIG [Suspect]
     Indication: MIGRAINE
     Route: 048
  3. ZOMIG [Suspect]
     Indication: HEADACHE
     Route: 048
  4. ZOMIG [Suspect]
     Indication: MIGRAINE
     Route: 048

REACTIONS (4)
  - Headache [Not Recovered/Not Resolved]
  - Migraine [Unknown]
  - Drug dose omission [Unknown]
  - Drug ineffective [Unknown]
